FAERS Safety Report 5745299-4 (Version None)
Quarter: 2008Q2

REPORT INFORMATION
  Report Type: 
  Country: None (occurrence: None)
  Receive Date: 20080520
  Receipt Date: 20080513
  Transmission Date: 20081010
  Serious: No
  Sender: FDA-Public Use
  Company Number: 08H-163-0314276-00

PATIENT
  Age: 40 Year
  Sex: Male
  Weight: 88 kg

DRUGS (4)
  1. PANHEPRIN [Suspect]
     Indication: INTRAVENOUS CATHETER MANAGEMENT
     Dates: start: 20080512, end: 20080512
  2. LORCET (VICODIN) [Concomitant]
  3. ULTRAM [Concomitant]
  4. KLONOPIN [Concomitant]

REACTIONS (2)
  - ANAPHYLACTIC REACTION [None]
  - SEPSIS [None]
